FAERS Safety Report 8479514-3 (Version None)
Quarter: 2012Q2

REPORT INFORMATION
  Report Type: 
  Country: None (occurrence: None)
  Receive Date: 20120629
  Receipt Date: 20120615
  Transmission Date: 20120825
  Serious: Yes (Hospitalization)
  Sender: FDA-Public Use
  Company Number: US-ACTELION-A-US2012-66829

PATIENT

DRUGS (3)
  1. TRACLEER [Suspect]
     Indication: PULMONARY ARTERIAL HYPERTENSION
     Dosage: UNK
     Route: 048
     Dates: start: 20091208
  2. CALCIUM CHANNEL BLOCKERS [Concomitant]
  3. REMODULIN [Concomitant]

REACTIONS (5)
  - LOSS OF CONSCIOUSNESS [None]
  - RESPIRATORY FAILURE [None]
  - ENDOTRACHEAL INTUBATION [None]
  - SEPSIS [None]
  - ALCOHOL WITHDRAWAL SYNDROME [None]
